FAERS Safety Report 16798480 (Version 1)
Quarter: 2019Q4

REPORT INFORMATION
  Report Type: Spontaneous
  Country: US (occurrence: US)
  Receive Date: 20190911
  Receipt Date: 20190911
  Transmission Date: 20200122
  Serious: No
  Sender: FDA-Public Use
  Company Number: None

PATIENT
  Age: 61 Year
  Sex: Male

DRUGS (2)
  1. CABOMETYX [Suspect]
     Active Substance: CABOZANTINIB S-MALATE
  2. CABOMETYX [Concomitant]
     Active Substance: CABOZANTINIB S-MALATE
     Dates: start: 20190801, end: 20190826

REACTIONS (4)
  - Lip ulceration [None]
  - Glossodynia [None]
  - Mouth ulceration [None]
  - Ageusia [None]

NARRATIVE: CASE EVENT DATE: 20190826
